FAERS Safety Report 8550245-4 (Version None)
Quarter: 2012Q3

REPORT INFORMATION
  Report Type: 
  Country: None (occurrence: None)
  Receive Date: 20120730
  Receipt Date: 20110411
  Transmission Date: 20120928
  Serious: No
  Sender: FDA-Public Use
  Company Number: US-ALLERGAN-1105048US

PATIENT
  Age: 82 Year
  Sex: Male

DRUGS (2)
  1. LUMIGAN [Suspect]
     Indication: GLAUCOMA
     Dosage: 1 DROP INSTILLED TWICE DAILY TO EACH EYE.
     Route: 047
     Dates: end: 20110410
  2. COMBIGAN [Concomitant]
     Indication: GLAUCOMA
     Dosage: UNK
     Route: 047

REACTIONS (3)
  - EYELID PAIN [None]
  - EYE PAIN [None]
  - GROWTH OF EYELASHES [None]
